FAERS Safety Report 8988907 (Version 1)
Quarter: 2012Q4

REPORT INFORMATION
  Report Type: 
  Country: US (occurrence: US)
  Receive Date: 20121228
  Receipt Date: 20121228
  Transmission Date: 20130627
  Serious: Yes (Hospitalization)
  Sender: FDA-Public Use
  Company Number: US-RANBAXY-2012US-63674

PATIENT
  Age: 54 Year
  Sex: Male

DRUGS (5)
  1. CIPROFLOXACIN [Suspect]
     Indication: DIVERTICULITIS
     Dosage: UNK
     Route: 042
  2. ADRENALINE [Suspect]
     Indication: ANAPHYLACTIC REACTION
     Dosage: UNK
     Route: 030
  3. METRONIDAZOLE [Concomitant]
     Indication: DIVERTICULITIS
     Dosage: UNK
     Route: 065
  4. DEXAMETHASONE [Concomitant]
     Indication: PRODUCT USED FOR UNKNOWN INDICATION
     Dosage: UNK
     Route: 065
  5. DIPHENHYDRAMINE [Concomitant]
     Indication: PRODUCT USED FOR UNKNOWN INDICATION
     Dosage: UNK
     Route: 065

REACTIONS (3)
  - Anaphylactic reaction [Recovering/Resolving]
  - Myocardial infarction [Unknown]
  - Arteriospasm coronary [Unknown]
